FAERS Safety Report 4759962-5 (Version None)
Quarter: 2005Q3

REPORT INFORMATION
  Report Type: 
  Country: None (occurrence: None)
  Receive Date: 20050831
  Receipt Date: 20050812
  Transmission Date: 20060218
  Serious: Yes (Death, Other)
  Sender: FDA-Public Use
  Company Number: USA0506100389

PATIENT
  Age: 67 Year
  Sex: Female

DRUGS (1)
  1. HUMALOG MIX 75/25 [Suspect]
     Indication: DIABETES MELLITUS

REACTIONS (3)
  - BREAST CANCER [None]
  - NEOPLASM MALIGNANT [None]
  - PHARMACEUTICAL PRODUCT COMPLAINT [None]
